FAERS Safety Report 9602833 (Version 1)
Quarter: 2013Q4

REPORT INFORMATION
  Report Type: Spontaneous
  Country: US (occurrence: US)
  Receive Date: 20131007
  Receipt Date: 20131007
  Transmission Date: 20140711
  Serious: Yes (Hospitalization)
  Sender: FDA-Public Use
  Company Number: US-B.I. PHARMACEUTICALS,INC./RIDGEFIELD-2013-BI-30702BP

PATIENT
  Age: 65 Year
  Sex: Female
  Weight: 120 kg

DRUGS (3)
  1. SPIRIVA [Suspect]
     Indication: CHRONIC OBSTRUCTIVE PULMONARY DISEASE
     Dosage: 18 MCG
     Route: 055
     Dates: start: 200905
  2. TORSEMIDE [Concomitant]
     Indication: CARDIAC FAILURE
     Dosage: 40 MG
     Route: 048
     Dates: start: 2002
  3. ADVAIR [Concomitant]
     Indication: CHRONIC OBSTRUCTIVE PULMONARY DISEASE
     Dates: start: 200905

REACTIONS (6)
  - Atrial flutter [Recovered/Resolved]
  - Weight increased [Not Recovered/Not Resolved]
  - Cataract [Not Recovered/Not Resolved]
  - Rash [Not Recovered/Not Resolved]
  - Macular fibrosis [Not Recovered/Not Resolved]
  - Cellulitis [Not Recovered/Not Resolved]
